FAERS Safety Report 9180787 (Version 1)
Quarter: 2013Q1

REPORT INFORMATION
  Report Type: Report from Study
  Country: CA (occurrence: CA)
  Receive Date: 20130322
  Receipt Date: 20130322
  Transmission Date: 20140127
  Serious: Yes (Other)
  Sender: FDA-Public Use
  Company Number: CA-JNJFOC-20130306915

PATIENT
  Age: 58 Year
  Sex: Male
  Weight: 72.2 kg

DRUGS (3)
  1. REMICADE [Suspect]
     Indication: CROHN^S DISEASE
     Dosage: 300M/M
     Route: 042
  2. AZATHIOPRINE [Concomitant]
     Route: 065
  3. WARFARIN [Concomitant]
     Route: 065

REACTIONS (2)
  - Abscess [Not Recovered/Not Resolved]
  - Ileostomy [Unknown]
